FAERS Safety Report 15430882 (Version 1)
Quarter: 2018Q3

REPORT INFORMATION
  Report Type: Spontaneous
  Country: US (occurrence: US)
  Receive Date: 20180926
  Receipt Date: 20180926
  Transmission Date: 20181010
  Serious: Yes (Other)
  Sender: FDA-Public Use
  Company Number: US-COOPERSURGICAL, INC.-US-2018CPS033135

PATIENT

DRUGS (1)
  1. PARAGARD T 380A [Suspect]
     Active Substance: COPPER
     Indication: PRODUCT USED FOR UNKNOWN INDICATION
     Dosage: UNK
     Route: 015
     Dates: start: 2013

REACTIONS (6)
  - Depression [Unknown]
  - Abdominal distension [Unknown]
  - Bacterial vulvovaginitis [Not Recovered/Not Resolved]
  - Discomfort [Unknown]
  - Haemorrhage [Recovered/Resolved]
  - Abdominal discomfort [Unknown]
